FAERS Safety Report 11261948 (Version 1)
Quarter: 2015Q3

REPORT INFORMATION
  Report Type: Spontaneous
  Country: CH (occurrence: CH)
  Receive Date: 20150710
  Receipt Date: 20150710
  Transmission Date: 20151125
  Serious: Yes (Hospitalization, Other)
  Sender: FDA-Public Use
  Company Number: CH-BAYER-2015-375338

PATIENT
  Age: 30 Year
  Sex: Female

DRUGS (1)
  1. JAYDESS [Suspect]
     Active Substance: LEVONORGESTREL
     Indication: CONTRACEPTION
     Dosage: 14 ?G/D, CONT
     Route: 015
     Dates: start: 20140610, end: 20150510

REACTIONS (6)
  - Ectopic pregnancy [None]
  - Procedural haemorrhage [None]
  - Infertility female [None]
  - Peritoneal haemorrhage [None]
  - Drug ineffective [None]
  - Abdominal pain [None]

NARRATIVE: CASE EVENT DATE: 2015
